FAERS Safety Report 9478783 (Version 1)
Quarter: 2013Q3

REPORT INFORMATION
  Report Type: Spontaneous
  Country: GB (occurrence: None)
  Receive Date: 20130822
  Receipt Date: 20130822
  Transmission Date: 20140515
  Serious: Yes (Other)
  Sender: FDA-Public Use
  Company Number: SYM-2013-08561

PATIENT
  Age: 11 Month
  Sex: 0

DRUGS (2)
  1. DIAZEPAM (DIAZEPAM) [Suspect]
  2. METHADONE (METHADONE) [Suspect]

REACTIONS (4)
  - Nystagmus [None]
  - Strabismus [None]
  - Visual acuity reduced [None]
  - Maternal drugs affecting foetus [None]
